FAERS Safety Report 13790235 (Version 1)
Quarter: 2017Q3

REPORT INFORMATION
  Report Type: Spontaneous
  Country: DE (occurrence: DE)
  Receive Date: 20170725
  Receipt Date: 20170725
  Transmission Date: 20171127
  Serious: Yes (Other)
  Sender: FDA-Public Use
  Company Number: DE-TEVA-788892GER

PATIENT
  Sex: Male

DRUGS (1)
  1. PROPRA-RATIOPHARM 40 MG FILMTABLETTEN [Suspect]
     Active Substance: PROPRANOLOL HYDROCHLORIDE
     Indication: ARRHYTHMIA
     Route: 048
     Dates: start: 2016

REACTIONS (3)
  - Drug effect decreased [Unknown]
  - Arrhythmia [Unknown]
  - Insomnia [Unknown]

NARRATIVE: CASE EVENT DATE: 201707
